FAERS Safety Report 20635141 (Version 1)
Quarter: 2022Q1

REPORT INFORMATION
  Report Type: Other
  Country: US (occurrence: None)
  Receive Date: 20220325
  Receipt Date: 20220325
  Transmission Date: 20220423
  Serious: Yes (Death, Hospitalization)
  Sender: FDA-Public Use
  Company Number: US-ROCHE-3047201

PATIENT
  Sex: Female

DRUGS (1)
  1. OCREVUS [Suspect]
     Active Substance: OCRELIZUMAB
     Indication: Primary progressive multiple sclerosis
     Dosage: THAN 600 MG EVERY 6 MONTHS?DATE OF TREATMENT: 20/FEB/2020, 02/SEP/2020, 17/FEB/2021, 18/AUG/2021
     Route: 065

REACTIONS (1)
  - COVID-19 [Fatal]
